FAERS Safety Report 5370096-1 (Version None)
Quarter: 2007Q2

REPORT INFORMATION
  Report Type: 
  Country: None (occurrence: None)
  Receive Date: 20070626
  Receipt Date: 20070615
  Transmission Date: 20071010
  Serious: Yes (Death)
  Sender: FDA-Public Use
  Company Number: AU-JNJFOC-20070101130

PATIENT
  Sex: Female

DRUGS (12)
  1. RISPERDAL CONSTA [Suspect]
     Route: 030
  2. RISPERDAL CONSTA [Suspect]
     Route: 030
  3. RISPERDAL CONSTA [Suspect]
     Indication: SCHIZOPHRENIA
     Route: 030
  4. RISPERDAL [Suspect]
     Dosage: ^1 MG NOCTE^
     Route: 048
  5. RISPERDAL [Suspect]
     Dosage: ^4 MG NOCTE^
     Route: 048
  6. RISPERDAL [Suspect]
     Dosage: ^6 MG NOCTE^ WITH PLANS TO REDUCE ORAL DOSE OVER NEXT 2 WEEKS
     Route: 048
  7. RISPERDAL [Suspect]
     Dosage: ^2 MG MANE/4 MG NOCTE^
     Route: 048
  8. RISPERDAL [Suspect]
     Dosage: ^1 MG MANE/2 MG NOCTE^
     Route: 048
  9. RISPERDAL [Suspect]
     Route: 048
  10. RISPERDAL [Suspect]
     Indication: SCHIZOPHRENIA
     Route: 048
  11. DOSTINEX [Suspect]
     Indication: HYPERPROLACTINAEMIA
  12. SOLIAN [Concomitant]
     Dosage: ^400 MG NOCTE^

REACTIONS (5)
  - ABNORMAL BEHAVIOUR [None]
  - CARDIAC ARREST [None]
  - HYPERTHERMIA [None]
  - PRESCRIBED OVERDOSE [None]
  - SEDATION [None]
